FAERS Safety Report 5664875-0 (Version None)
Quarter: 2008Q1

REPORT INFORMATION
  Report Type: 
  Country: None (occurrence: None)
  Receive Date: 20080314
  Receipt Date: 20080303
  Transmission Date: 20080703
  Serious: Yes (Other)
  Sender: FDA-Public Use
  Company Number: FR-PFIZER INC-2007104229

PATIENT
  Sex: Male

DRUGS (10)
  1. XANAX [Suspect]
     Indication: ANXIETY
     Dosage: DAILY DOSE:.25MG
  2. BIMATOPROST [Concomitant]
  3. BRINZOLAMIDE [Concomitant]
  4. TEVETEN [Concomitant]
  5. MONO-TILDIEM [Concomitant]
  6. SPIRIVA [Concomitant]
  7. QVAR 40 [Concomitant]
  8. VERAPAMIL [Concomitant]
  9. ATROVENT [Concomitant]
  10. ALL OTHER THERAPEUTIC PRODUCTS [Concomitant]

REACTIONS (7)
  - ASTHMA [None]
  - EXTRASYSTOLES [None]
  - HEART RATE DECREASED [None]
  - LABILE BLOOD PRESSURE [None]
  - MALAISE [None]
  - PARAESTHESIA [None]
  - VERTIGO [None]
